FAERS Safety Report 5700610-5 (Version None)
Quarter: 2008Q2

REPORT INFORMATION
  Report Type: 
  Country: None (occurrence: None)
  Receive Date: 20080410
  Receipt Date: 20080403
  Transmission Date: 20081010
  Serious: Yes (Life-Threatening, Other)
  Sender: FDA-Public Use
  Company Number: US-GENENTECH-248385

PATIENT
  Sex: Male
  Weight: 66.667 kg

DRUGS (6)
  1. RITUXAN [Suspect]
     Indication: RHEUMATOID ARTHRITIS
     Dosage: 1000 MG, 2/WEEK
     Route: 042
     Dates: start: 20070731
  2. RITUXAN [Suspect]
     Dosage: 1000 MG, 2/WEEK
     Route: 042
     Dates: start: 20070817
  3. NYSTATIN [Concomitant]
     Indication: CANDIDIASIS
  4. PREDNISONE [Concomitant]
     Indication: DRUG USE FOR UNKNOWN INDICATION
     Dosage: 20 MG, QD
     Dates: start: 20070817
  5. PREDNISONE [Concomitant]
     Dosage: 10 MG, UNK
     Dates: start: 20070912
  6. METHOTREXATE [Concomitant]
     Indication: DRUG USE FOR UNKNOWN INDICATION
     Dosage: 25 MG, 1/WEEK

REACTIONS (2)
  - HYPERCALCAEMIA [None]
  - TRANSIENT ISCHAEMIC ATTACK [None]
